FAERS Safety Report 7506032-9 (Version None)
Quarter: 2011Q2

REPORT INFORMATION
  Report Type: 
  Country: None (occurrence: None)
  Receive Date: 20110526
  Receipt Date: 20110523
  Transmission Date: 20111010
  Serious: Yes (Other)
  Sender: FDA-Public Use
  Company Number: US-PFIZER INC-HQWYE699711OCT04

PATIENT
  Sex: Female
  Weight: 78 kg

DRUGS (4)
  1. PREMPRO [Suspect]
     Indication: HORMONE REPLACEMENT THERAPY
     Dosage: 0.625 AND 2.5MG
     Route: 048
     Dates: start: 19960101, end: 20030101
  2. PREMARIN [Suspect]
     Dosage: UNK
     Route: 067
     Dates: end: 19960101
  3. PREMARIN [Suspect]
     Indication: HORMONE REPLACEMENT THERAPY
     Dosage: UNK
     Route: 048
     Dates: end: 19960101
  4. PROVERA [Suspect]
     Indication: HORMONE REPLACEMENT THERAPY
     Dosage: UNK
     Route: 048
     Dates: end: 19960101

REACTIONS (1)
  - BREAST CANCER METASTATIC [None]
